FAERS Safety Report 17396000 (Version 1)
Quarter: 2020Q1

REPORT INFORMATION
  Report Type: Spontaneous
  Country: US (occurrence: US)
  Receive Date: 20200207
  Receipt Date: 20200207
  Transmission Date: 20200409
  Serious: Yes (Other)
  Sender: FDA-Public Use
  Company Number: None

PATIENT
  Age: 72 Year
  Sex: Male
  Weight: 88.45 kg

DRUGS (20)
  1. NAPROXEN. [Concomitant]
     Active Substance: NAPROXEN
  2. COENZYME Q10 [Concomitant]
     Active Substance: UBIDECARENONE
  3. TAMSULOSIN [Concomitant]
     Active Substance: TAMSULOSIN
  4. CYANOCOBALAMIN. [Concomitant]
     Active Substance: CYANOCOBALAMIN
  5. TEMOZOLOMIDE. [Suspect]
     Active Substance: TEMOZOLOMIDE
     Indication: BONE CANCER
     Dosage: ?          OTHER FREQUENCY:BID DAYS 10-14;?
     Route: 048
     Dates: start: 20190917
  6. CENTRUM SILVER [Concomitant]
     Active Substance: MINERALS\VITAMINS
  7. FISH OIL [Concomitant]
     Active Substance: FISH OIL
  8. HYDROMORPHONE [Concomitant]
     Active Substance: HYDROMORPHONE
  9. ROSUVASTATIN. [Concomitant]
     Active Substance: ROSUVASTATIN
  10. DULOXETINE. [Concomitant]
     Active Substance: DULOXETINE
  11. MOVANTIK [Concomitant]
     Active Substance: NALOXEGOL OXALATE
  12. ONDANSETRON [Concomitant]
     Active Substance: ONDANSETRON
  13. POTASSIUM CHLORIDE. [Concomitant]
     Active Substance: POTASSIUM CHLORIDE
  14. DURAGESIC [Concomitant]
     Active Substance: FENTANYL
  15. FUROSEMIDE. [Concomitant]
     Active Substance: FUROSEMIDE
  16. GABAPENTIN. [Concomitant]
     Active Substance: GABAPENTIN
  17. CIALIS [Concomitant]
     Active Substance: TADALAFIL
  18. LIDOCAINE-PRILOCAINE [Concomitant]
     Active Substance: LIDOCAINE\PRILOCAINE
  19. METOLAZONE. [Concomitant]
     Active Substance: METOLAZONE
  20. TEMOZOLOMIDE. [Concomitant]
     Active Substance: TEMOZOLOMIDE

REACTIONS (3)
  - Weight decreased [None]
  - Oral pain [None]
  - Feeding disorder [None]

NARRATIVE: CASE EVENT DATE: 20200207
